FAERS Safety Report 20742477 (Version 3)
Quarter: 2022Q3

REPORT INFORMATION
  Report Type: Spontaneous
  Country: US (occurrence: US)
  Receive Date: 20220424
  Receipt Date: 20220923
  Transmission Date: 20221027
  Serious: No
  Sender: FDA-Public Use
  Company Number: US-BRISTOL-MYERS SQUIBB COMPANY-2022-016849

PATIENT
  Age: 72 Year
  Sex: Female
  Weight: 71 kg

DRUGS (19)
  1. REVLIMID [Suspect]
     Active Substance: LENALIDOMIDE
     Indication: Plasma cell myeloma
     Route: 048
     Dates: start: 20220314
  2. REVLIMID [Suspect]
     Active Substance: LENALIDOMIDE
     Route: 048
  3. DEXAMETHASONE [Concomitant]
     Active Substance: DEXAMETHASONE
     Indication: Product used for unknown indication
     Route: 048
     Dates: start: 20220225
  4. ALPRAZOLAM [Concomitant]
     Active Substance: ALPRAZOLAM
     Indication: Product used for unknown indication
     Dosage: HS
     Route: 048
     Dates: start: 20220303
  5. BENAZAPRIL HCL [Concomitant]
     Indication: Product used for unknown indication
     Route: 048
     Dates: start: 20220303
  6. LEVOCETIRIZINE DIHYDROCHLORIDE [Concomitant]
     Active Substance: LEVOCETIRIZINE DIHYDROCHLORIDE
     Indication: Product used for unknown indication
     Route: 048
     Dates: start: 20220303
  7. FLONASE ALLERGY RELIEF [Concomitant]
     Active Substance: FLUTICASONE PROPIONATE
     Indication: Product used for unknown indication
     Dosage: 50 MCG/ACT
     Route: 045
     Dates: start: 20220303
  8. CVS MELATONIN [Concomitant]
     Indication: Product used for unknown indication
     Dosage: HS
     Route: 048
     Dates: start: 20220303
  9. CVS NAPROXEN SODIUM [Concomitant]
     Indication: Product used for unknown indication
     Route: 048
     Dates: start: 20220303
  10. ACETAMINOPHEN [Concomitant]
     Active Substance: ACETAMINOPHEN
     Indication: Product used for unknown indication
     Route: 048
     Dates: start: 20220303
  11. CVS LYSINE [Concomitant]
     Indication: Stomatitis
     Route: 048
     Dates: start: 20220303
  12. CVS FISH OIL [Concomitant]
     Indication: Product used for unknown indication
     Route: 048
     Dates: start: 20220303, end: 20220307
  13. PROLIA [Concomitant]
     Active Substance: DENOSUMAB
     Indication: Product used for unknown indication
     Dosage: 60 MG/ML
     Route: 058
     Dates: start: 20220307
  14. SIMVASTATIN [Concomitant]
     Active Substance: SIMVASTATIN
     Indication: Product used for unknown indication
     Route: 048
     Dates: start: 20220307
  15. CITRACAL+D3 [Concomitant]
     Indication: Product used for unknown indication
     Dosage: 250-107-500
     Route: 048
     Dates: start: 20220307
  16. ASPIRIN ORAL TABLET DELAYED RELEASE [Concomitant]
     Indication: Product used for unknown indication
     Route: 048
  17. METOCLOPRAMIDE HYDROCHLORIDE [Concomitant]
     Active Substance: METOCLOPRAMIDE HYDROCHLORIDE
     Indication: Product used for unknown indication
     Route: 048
     Dates: start: 20220401
  18. REVLIMID [Concomitant]
     Active Substance: LENALIDOMIDE
     Indication: Product used for unknown indication
     Route: 048
     Dates: start: 20220428, end: 20220531
  19. PREVIDENT [Concomitant]
     Active Substance: SODIUM FLUORIDE
     Indication: Product used for unknown indication
     Dosage: FREQUENCY-DAILY
     Route: 004
     Dates: start: 20220428, end: 20220531

REACTIONS (3)
  - Dry mouth [Recovering/Resolving]
  - Nausea [Recovering/Resolving]
  - Constipation [Recovering/Resolving]

NARRATIVE: CASE EVENT DATE: 20220322
